FAERS Safety Report 14128824 (Version 1)
Quarter: 2017Q4

REPORT INFORMATION
  Report Type: Spontaneous
  Country: US (occurrence: US)
  Receive Date: 20171026
  Receipt Date: 20171026
  Transmission Date: 20180321
  Serious: No
  Sender: FDA-Public Use
  Company Number: US-GLAXOSMITHKLINE-US2017160813

PATIENT
  Sex: Male

DRUGS (1)
  1. EXCEDRIN MIGRAINE [Suspect]
     Active Substance: ACETAMINOPHEN\ASPIRIN\CAFFEINE
     Indication: MIGRAINE
     Dosage: TOOK 2 EXCEDRIN MIGRAINE AT 4:30AM THIS MORNING, THEN AT 7:30AM HE TOOK 2 MORE
     Dates: start: 20171018

REACTIONS (5)
  - Dizziness [Unknown]
  - Fatigue [Unknown]
  - Overdose [Unknown]
  - Nausea [Unknown]
  - Drug ineffective [Unknown]
